FAERS Safety Report 22051582 (Version 1)
Quarter: 2023Q1

REPORT INFORMATION
  Report Type: Spontaneous
  Country: SE (occurrence: SE)
  Receive Date: 20230301
  Receipt Date: 20230301
  Transmission Date: 20230418
  Serious: Yes (Other)
  Sender: FDA-Public Use
  Company Number: None

PATIENT
  Age: 19 Year
  Sex: Female
  Weight: 68 kg

DRUGS (5)
  1. SERTRALINE [Suspect]
     Active Substance: SERTRALINE HYDROCHLORIDE
     Indication: Depression
     Dosage: STRENGTH: 100 MG, 100 MG 1 TABLET /DAY
     Dates: start: 20210412
  2. HYDROXYZINE [Suspect]
     Active Substance: HYDROXYZINE HYDROCHLORIDE
     Indication: Anxiety
     Dosage: STRENGTH: 25 MG, 25 MG 1-3 TABLET / DAY
     Dates: start: 20210401
  3. TRIMEPRAZINE [Concomitant]
     Active Substance: TRIMEPRAZINE
     Dosage: STRENGTH: 40 MG/ML ORAL DROPS, SOLUTION, 40 MG/ML 0.25 - 0.75ML 1 TIME / DAY
     Dates: start: 20210310
  4. MELATONIN [Concomitant]
     Active Substance: MELATONIN
     Dosage: STRENGTH: 4 MG, 4 MG 1 TABLET / DAY
     Dates: start: 20210310
  5. SERTRALINE [Suspect]
     Active Substance: SERTRALINE HYDROCHLORIDE
     Indication: Anxiety
     Dosage: STRENGTH: 100 MG

REACTIONS (6)
  - Sexually inappropriate behaviour [Not Recovered/Not Resolved]
  - Amnesia [Not Recovered/Not Resolved]
  - Alcoholism [Not Recovered/Not Resolved]
  - Aggression [Not Recovered/Not Resolved]
  - Alcohol use disorder [Not Recovered/Not Resolved]
  - Personality change [Not Recovered/Not Resolved]

NARRATIVE: CASE EVENT DATE: 20210101
